FAERS Safety Report 21812030 (Version 1)
Quarter: 2023Q1

REPORT INFORMATION
  Report Type: Spontaneous
  Country: GB (occurrence: GB)
  Receive Date: 20230103
  Receipt Date: 20230103
  Transmission Date: 20230418
  Serious: Yes (Hospitalization, Other)
  Sender: FDA-Public Use
  Company Number: None

PATIENT

DRUGS (7)
  1. TRANSDERM SCOP [Suspect]
     Active Substance: SCOPOLAMINE
     Indication: Salivary hypersecretion
     Dosage: 300 MG, QD
     Route: 061
     Dates: start: 20210413
  2. CLOZARIL [Suspect]
     Active Substance: CLOZAPINE
     Indication: Schizophrenia
     Dosage: 50 MG (MORNING)
     Route: 048
     Dates: start: 20201123, end: 20220502
  3. CLOZARIL [Suspect]
     Active Substance: CLOZAPINE
     Dosage: 225 MG (AT NIGHT)
     Route: 048
     Dates: start: 20201123, end: 20220502
  4. CLOZARIL [Suspect]
     Active Substance: CLOZAPINE
     Dosage: 225 MG, QD (HS)
     Route: 048
     Dates: start: 20220502, end: 20221129
  5. BISOPROLOL [Suspect]
     Active Substance: BISOPROLOL
     Indication: Tachycardia
     Dosage: 1.25 MG, QD
     Route: 048
     Dates: start: 20201208
  6. DULOXETINE [Suspect]
     Active Substance: DULOXETINE
     Indication: Depression
     Dosage: 90 MG, QD
     Route: 048
     Dates: start: 20190930
  7. POLYETHYLENE GLYCOL 3350\POTASSIUM CHLORIDE\SODIUM BICARBONATE\SODIUM [Suspect]
     Active Substance: POLYETHYLENE GLYCOL 3350\POTASSIUM CHLORIDE\SODIUM BICARBONATE\SODIUM CHLORIDE
     Indication: Constipation
     Dosage: UNK UNK, BID (HALF A SACHET)
     Route: 048
     Dates: start: 20201223

REACTIONS (1)
  - Aggression [Recovered/Resolved]

NARRATIVE: CASE EVENT DATE: 20220502
